APPROVED DRUG PRODUCT: EPTIFIBATIDE
Active Ingredient: EPTIFIBATIDE
Strength: 75MG/100ML
Dosage Form/Route: INJECTABLE;INJECTION
Application: A204693 | Product #002 | TE Code: AP
Applicant: SAGENT PHARMACEUTICALS INC
Approved: Mar 7, 2018 | RLD: No | RS: No | Type: RX